FAERS Safety Report 6748635-5 (Version None)
Quarter: 2010Q2

REPORT INFORMATION
  Report Type: 
  Country: None (occurrence: None)
  Receive Date: 20100601
  Receipt Date: 20100427
  Transmission Date: 20101027
  Serious: Yes (Death)
  Sender: FDA-Public Use
  Company Number: JP-BAYER-200812484BYL

PATIENT
  Age: 58 Year
  Sex: Male
  Weight: 56 kg

DRUGS (9)
  1. NEXAVAR [Suspect]
     Indication: RENAL CELL CARCINOMA
     Dosage: UNIT DOSE: 200 MG
     Route: 048
     Dates: start: 20080820
  2. CORTRIL [Concomitant]
     Dosage: AS USED: 20 MG
     Route: 048
     Dates: start: 20080820, end: 20080910
  3. SLOW-K [Concomitant]
     Dosage: AS USED: 600 MG
     Route: 048
     Dates: start: 20080820, end: 20080910
  4. OMEPRAL [Concomitant]
     Indication: ABDOMINAL DISCOMFORT
     Dosage: AS USED: 10 MG
     Route: 048
     Dates: start: 20080820, end: 20080910
  5. GASLON N [Concomitant]
     Indication: ABDOMINAL DISCOMFORT
     Dosage: AS USED: 2 MG
     Route: 048
     Dates: start: 20080820, end: 20080910
  6. PRIMPERAN TAB [Concomitant]
     Indication: NAUSEA
     Dosage: AS USED: 10 MG
     Route: 054
     Dates: start: 20080820, end: 20080910
  7. NAPROXEN [Concomitant]
     Indication: TUMOUR ASSOCIATED FEVER
     Dosage: AS USED: 200 MG
     Route: 048
     Dates: start: 20080820, end: 20080910
  8. LASIX [Concomitant]
     Indication: GENERALISED OEDEMA
     Dosage: AS USED: 20 MG
     Route: 048
     Dates: start: 20080822, end: 20080910
  9. OXYCONTIN [Concomitant]
     Indication: PAIN
     Dosage: AS USED: 20 MG
     Route: 048
     Dates: start: 20080825, end: 20080910

REACTIONS (2)
  - PALMAR-PLANTAR ERYTHRODYSAESTHESIA SYNDROME [None]
  - RENAL CELL CARCINOMA [None]
